FAERS Safety Report 18185723 (Version 1)
Quarter: 2020Q3

REPORT INFORMATION
  Report Type: Spontaneous
  Country: US (occurrence: US)
  Receive Date: 20200821
  Receipt Date: 20200821
  Transmission Date: 20201103
  Serious: No
  Sender: FDA-Public Use
  Company Number: None

PATIENT
  Age: 36 Year
  Sex: Female
  Weight: 47.63 kg

DRUGS (2)
  1. ESTRADIOL(V) DIS 0.1/24 [Suspect]
     Active Substance: ESTRADIOL
     Dates: start: 20200807, end: 20200821
  2. ESTRADIOL(V) DIS 0.1/24 [Concomitant]
     Dates: start: 20200807, end: 20200821

REACTIONS (3)
  - Product adhesion issue [None]
  - Application site irritation [None]
  - Application site pain [None]

NARRATIVE: CASE EVENT DATE: 20200821
